FAERS Safety Report 5031253-7 (Version None)
Quarter: 2006Q2

REPORT INFORMATION
  Report Type: 
  Country: None (occurrence: None)
  Receive Date: 20060619
  Receipt Date: 20060619
  Transmission Date: 20061013
  Serious: Yes (Disabling)
  Sender: FDA-Public Use
  Company Number: None

PATIENT
  Age: 48 Year
  Sex: Female
  Weight: 103.4201 kg

DRUGS (2)
  1. ETODOLAC [Suspect]
     Indication: FIBROMYALGIA
     Dosage: 600 MG 1X DAILY PO
     Route: 048
  2. ETODOLAC [Suspect]
     Indication: OSTEOARTHRITIS
     Dosage: 600 MG 1X DAILY PO
     Route: 048

REACTIONS (3)
  - DRUG INEFFECTIVE [None]
  - GASTROOESOPHAGEAL REFLUX DISEASE [None]
  - PAIN [None]
